FAERS Safety Report 25307688 (Version 1)
Quarter: 2025Q2

REPORT INFORMATION
  Report Type: Spontaneous
  Country: FR (occurrence: FR)
  Receive Date: 20250513
  Receipt Date: 20250513
  Transmission Date: 20250717
  Serious: Yes (Other)
  Sender: MYLAN
  Company Number: FR-GRUNENTHAL-2025-104201

PATIENT

DRUGS (16)
  1. TRAMADOL [Suspect]
     Active Substance: TRAMADOL
     Indication: Product used for unknown indication
  2. TRAMADOL [Suspect]
     Active Substance: TRAMADOL
  3. TRAMADOL [Suspect]
     Active Substance: TRAMADOL
     Route: 064
  4. TRAMADOL [Suspect]
     Active Substance: TRAMADOL
     Route: 064
  5. TRAMADOL [Suspect]
     Active Substance: TRAMADOL
  6. TRAMADOL [Suspect]
     Active Substance: TRAMADOL
  7. TRAMADOL [Suspect]
     Active Substance: TRAMADOL
     Route: 064
  8. TRAMADOL [Suspect]
     Active Substance: TRAMADOL
     Route: 064
  9. METHADONE HYDROCHLORIDE [Suspect]
     Active Substance: METHADONE HYDROCHLORIDE
     Indication: Product used for unknown indication
     Dosage: 210 MILLIGRAM, QD (210 MILLIGRAM, 1/DAY)
  10. METHADONE HYDROCHLORIDE [Suspect]
     Active Substance: METHADONE HYDROCHLORIDE
     Dosage: 210 MILLIGRAM, QD (210 MILLIGRAM, 1/DAY)
  11. METHADONE HYDROCHLORIDE [Suspect]
     Active Substance: METHADONE HYDROCHLORIDE
     Dosage: 210 MILLIGRAM, QD (210 MILLIGRAM, 1/DAY)
     Route: 064
  12. METHADONE HYDROCHLORIDE [Suspect]
     Active Substance: METHADONE HYDROCHLORIDE
     Dosage: 210 MILLIGRAM, QD (210 MILLIGRAM, 1/DAY)
     Route: 064
  13. METHADONE HYDROCHLORIDE [Suspect]
     Active Substance: METHADONE HYDROCHLORIDE
     Dosage: 210 MILLIGRAM, QD (210 MILLIGRAM, 1/DAY)
  14. METHADONE HYDROCHLORIDE [Suspect]
     Active Substance: METHADONE HYDROCHLORIDE
     Dosage: 210 MILLIGRAM, QD (210 MILLIGRAM, 1/DAY)
  15. METHADONE HYDROCHLORIDE [Suspect]
     Active Substance: METHADONE HYDROCHLORIDE
     Dosage: 210 MILLIGRAM, QD (210 MILLIGRAM, 1/DAY)
     Route: 064
  16. METHADONE HYDROCHLORIDE [Suspect]
     Active Substance: METHADONE HYDROCHLORIDE
     Dosage: 210 MILLIGRAM, QD (210 MILLIGRAM, 1/DAY)
     Route: 064

REACTIONS (3)
  - Foetal growth restriction [Unknown]
  - Drug withdrawal syndrome neonatal [Unknown]
  - Foetal exposure during pregnancy [Unknown]

NARRATIVE: CASE EVENT DATE: 20240614
